FAERS Safety Report 4628532-1 (Version None)
Quarter: 2005Q2

REPORT INFORMATION
  Report Type: 
  Country: None (occurrence: None)
  Receive Date: 20050404
  Receipt Date: 20050329
  Transmission Date: 20051028
  Serious: Yes (Life-Threatening)
  Sender: FDA-Public Use
  Company Number: 2005CG00628

PATIENT
  Age: 84 Year
  Sex: Male

DRUGS (3)
  1. ZESTRIL [Suspect]
     Dosage: 30 MG DAILY PO
     Route: 048
  2. ALDACTONE [Suspect]
     Dosage: 25 MG DAILY PO
     Route: 048
  3. DIFFU K [Suspect]

REACTIONS (6)
  - BRADYCARDIA [None]
  - COMA [None]
  - DIALYSIS [None]
  - GENERAL PHYSICAL HEALTH DETERIORATION [None]
  - HYPERKALAEMIA [None]
  - OLIGURIA [None]
